FAERS Safety Report 14200142 (Version 5)
Quarter: 2018Q2

REPORT INFORMATION
  Report Type: Spontaneous
  Country: US (occurrence: US)
  Receive Date: 20171117
  Receipt Date: 20180406
  Transmission Date: 20180711
  Serious: Yes (Other)
  Sender: FDA-Public Use
  Company Number: US-PFIZER INC-2017491235

PATIENT
  Age: 75 Year
  Sex: Male

DRUGS (1)
  1. INLYTA [Suspect]
     Active Substance: AXITINIB
     Dosage: 3 MG, 2X/DAY (3 (1MG) TABLETS TWO TIMES PER DAY FOR THE FIRST WEEK)

REACTIONS (4)
  - Upper limb fracture [Unknown]
  - Neoplasm progression [Unknown]
  - Fall [Unknown]
  - Face injury [Unknown]
